FAERS Safety Report 6273312-7 (Version None)
Quarter: 2009Q3

REPORT INFORMATION
  Report Type: 
  Country: None (occurrence: None)
  Receive Date: 20090720
  Receipt Date: 20090710
  Transmission Date: 20100115
  Serious: Yes (Other)
  Sender: FDA-Public Use
  Company Number: US-ROCHE-643653

PATIENT
  Age: 66 Year
  Sex: Female

DRUGS (1)
  1. BONIVA [Suspect]
     Indication: OSTEOPENIA
     Route: 048
     Dates: start: 20070101, end: 20080101

REACTIONS (4)
  - ERUCTATION [None]
  - JAW DISORDER [None]
  - LOOSE TOOTH [None]
  - TOOTH EXTRACTION [None]
